FAERS Safety Report 22590679 (Version 3)
Quarter: 2023Q2

REPORT INFORMATION
  Report Type: Spontaneous
  Country: US (occurrence: US)
  Receive Date: 20230612
  Receipt Date: 20230628
  Transmission Date: 20230722
  Serious: Yes (Other)
  Sender: FDA-Public Use
  Company Number: US-JNJFOC-20230609620

PATIENT
  Age: 17 Year
  Sex: Male

DRUGS (3)
  1. AVOBENZONE\HOMOSALATE\OCTISALATE\OCTOCRYLENE OR AVOBENZONE\HOMOSALATE\ [Suspect]
     Active Substance: AVOBENZONE\HOMOSALATE\OCTISALATE\OCTOCRYLENE OR AVOBENZONE\HOMOSALATE\OCTISALATE\OCTOCRYLENE\OXYBENZ
     Indication: Product used for unknown indication
     Dosage: REGULARLY AND TYPICALLY ON A WEEKLY BASIS NEAR THEIR HOME, AT THE POOL, AT THE BEACH, AND IN DAILY O
     Route: 061
     Dates: start: 200606, end: 202007
  2. AVOBENZONE\HOMOSALATE\OCTISALATE\OCTOCRYLENE OR AVOBENZONE\HOMOSALATE\ [Suspect]
     Active Substance: AVOBENZONE\HOMOSALATE\OCTISALATE\OCTOCRYLENE OR AVOBENZONE\HOMOSALATE\OCTISALATE\OCTOCRYLENE\OXYBENZ
     Indication: Product used for unknown indication
     Dosage: REGULARLY AND TYPICALLY ON A WEEKLY BASIS NEAR THEIR HOME, AT THE POOL, AT THE BEACH, AND IN DAILY O
     Route: 061
     Dates: start: 200606, end: 202007
  3. TITANIUM DIOXIDE\ZINC OXIDE [Suspect]
     Active Substance: TITANIUM DIOXIDE\ZINC OXIDE
     Indication: Product used for unknown indication
     Dosage: REGULARLY AND TYPICALLY ON A WEEKLY BASIS NEAR THEIR HOME, AT THE POOL, AT THE BEACH, AND IN DAILY O
     Route: 061
     Dates: start: 200606, end: 202007

REACTIONS (3)
  - Acute myeloid leukaemia [Unknown]
  - Exposure to toxic agent [Unknown]
  - Product contamination chemical [Unknown]

NARRATIVE: CASE EVENT DATE: 20200701
